FAERS Safety Report 18501557 (Version 1)
Quarter: 2020Q4

REPORT INFORMATION
  Report Type: Spontaneous
  Country: US (occurrence: US)
  Receive Date: 20201113
  Receipt Date: 20201113
  Transmission Date: 20210114
  Serious: Yes (Life-Threatening, Hospitalization, Disabling, Other)
  Sender: FDA-Public Use
  Company Number: None

PATIENT
  Age: 33 Year
  Sex: Female
  Weight: 61.24 kg

DRUGS (8)
  1. VITAMIN D [Concomitant]
     Active Substance: VITAMIN D NOS
  2. METHYL B12 [Concomitant]
     Active Substance: METHYLCOBALAMIN
  3. VITAMIN E [Concomitant]
     Active Substance: .ALPHA.-TOCOPHEROL
  4. CALCIUM D-GLUCARATE [Concomitant]
  5. NEXPLANON [Suspect]
     Active Substance: ETONOGESTREL
     Dates: start: 20150917, end: 20160406
  6. XYZAL [Concomitant]
     Active Substance: LEVOCETIRIZINE DIHYDROCHLORIDE
  7. TAMOXIFEN [Concomitant]
     Active Substance: TAMOXIFEN
  8. FOLATE [Concomitant]
     Active Substance: FOLATE SODIUM

REACTIONS (1)
  - Breast cancer [None]

NARRATIVE: CASE EVENT DATE: 20160406
